FAERS Safety Report 9094127 (Version 1)
Quarter: 2013Q1

REPORT INFORMATION
  Report Type: Spontaneous
  Country: US (occurrence: None)
  Receive Date: 20130122
  Receipt Date: 20130122
  Transmission Date: 20140127
  Serious: Yes (Death)
  Sender: FDA-Public Use
  Company Number: 2013POI058000045

PATIENT
  Age: 56 Year
  Sex: Male

DRUGS (1)
  1. OXYCODONE HCL [Suspect]
     Route: 048
     Dates: start: 2011

REACTIONS (3)
  - Cardiac arrest [None]
  - Respiratory arrest [None]
  - Adverse drug reaction [None]
